FAERS Safety Report 8547795 (Version 3)
Quarter: 2012Q4

REPORT INFORMATION
  Report Type: Report from Study
  Country: FR (occurrence: FR)
  Receive Date: 20120504
  Receipt Date: 20121026
  Transmission Date: 20130627
  Serious: Yes (Death, Hospitalization)
  Sender: FDA-Public Use
  Company Number: FR-TEVA-336031USA

PATIENT
  Age: 70 Year
  Sex: Male
  Weight: 69 kg

DRUGS (11)
  1. TREANDA [Suspect]
     Indication: MANTLE CELL LYMPHOMA
     Dosage: 160 Milligram Daily; UID/QD
     Route: 041
     Dates: start: 20120228
  2. BORTEZOMIB [Suspect]
     Indication: MANTLE CELL LYMPHOMA
     Dosage: days 1, 4, 8 and 11 Cyclic
     Route: 058
     Dates: start: 20120228
  3. RITUXIMAB [Suspect]
     Indication: MANTLE CELL LYMPHOMA
     Dosage: 670 Milligram Daily;
     Route: 041
     Dates: start: 20120228, end: 20120327
  4. DETENSIEL [Concomitant]
     Indication: HYPERTENSION
     Route: 048
     Dates: end: 20120403
  5. LOVENOX [Concomitant]
     Indication: VASCULAR COMPRESSION
     Route: 058
     Dates: start: 201202, end: 20120403
  6. XYZAL [Concomitant]
     Indication: SKIN TOXICITY
     Route: 048
     Dates: start: 20120402, end: 20120403
  7. HYDROCORTISONE [Concomitant]
     Indication: SKIN TOXICITY
     Dates: start: 20120402, end: 20120403
  8. LASILIX [Concomitant]
     Indication: PLEURAL EFFUSION
     Dosage: 20 Milligram Daily;
     Dates: start: 201202, end: 20120404
  9. ZYLORIC [Concomitant]
  10. ZELITREX [Concomitant]
  11. VORICONAZOLE [Concomitant]

REACTIONS (5)
  - Cardiac arrest [Fatal]
  - Ascites [Recovered/Resolved]
  - Dyspnoea [Recovered/Resolved]
  - Asthenia [Recovered/Resolved]
  - Dyspnoea [Recovered/Resolved]
